FAERS Safety Report 22945077 (Version 2)
Quarter: 2023Q4

REPORT INFORMATION
  Report Type: Spontaneous
  Country: US (occurrence: US)
  Receive Date: 20230914
  Receipt Date: 20231024
  Transmission Date: 20240110
  Serious: No
  Sender: FDA-Public Use
  Company Number: US-PFIZER INC-PV202300153745

PATIENT
  Age: 45 Year
  Sex: Female

DRUGS (1)
  1. XELJANZ XR [Suspect]
     Active Substance: TOFACITINIB CITRATE
     Indication: Rheumatoid arthritis
     Dosage: 11 MG, DAILY
     Route: 048
     Dates: start: 20230729, end: 20230901

REACTIONS (5)
  - Therapeutic product effect decreased [Unknown]
  - COVID-19 [Unknown]
  - Illness [Unknown]
  - Bacterial vaginosis [Unknown]
  - Fungal infection [Unknown]

NARRATIVE: CASE EVENT DATE: 20230101
